FAERS Safety Report 7381745-0 (Version None)
Quarter: 2011Q1

REPORT INFORMATION
  Report Type: 
  Country: None (occurrence: None)
  Receive Date: 20110329
  Receipt Date: 20110321
  Transmission Date: 20110831
  Serious: Yes (Other)
  Sender: FDA-Public Use
  Company Number: US-TEVA-272758USA

PATIENT
  Age: 51 Year
  Sex: Female

DRUGS (1)
  1. METHYLPREDNISOLONE TABLET 4MG [Suspect]

REACTIONS (2)
  - PARAPLEGIA [None]
  - ARTERIOVENOUS FISTULA [None]
